FAERS Safety Report 13613300 (Version 1)
Quarter: 2017Q2

REPORT INFORMATION
  Report Type: Spontaneous
  Country: US (occurrence: US)
  Receive Date: 20170605
  Receipt Date: 20170605
  Transmission Date: 20170830
  Serious: No
  Sender: FDA-Public Use
  Company Number: US-MEDA-2017050084

PATIENT
  Age: 61 Year
  Sex: Female
  Weight: 71 kg

DRUGS (2)
  1. LEVOTHYROXINE. [Concomitant]
     Active Substance: LEVOTHYROXINE
     Indication: THYROID DISORDER
  2. DYMISTA [Suspect]
     Active Substance: AZELASTINE HYDROCHLORIDE\FLUTICASONE PROPIONATE
     Indication: RHINITIS ALLERGIC
     Dates: start: 201610

REACTIONS (5)
  - Dyspnoea [Unknown]
  - Incorrect dose administered [Unknown]
  - Drug dose omission [Recovered/Resolved]
  - Nasal dryness [Unknown]
  - Nasal crusting [Unknown]

NARRATIVE: CASE EVENT DATE: 201610
